FAERS Safety Report 5446644-X (Version None)
Quarter: 2007Q3

REPORT INFORMATION
  Report Type: 
  Country: None (occurrence: None)
  Receive Date: 20070907
  Receipt Date: 20070828
  Transmission Date: 20080115
  Serious: Yes (Other)
  Sender: FDA-Public Use
  Company Number: US-PFIZER INC-2007067783

PATIENT
  Age: 69 Year
  Sex: Male
  Weight: 99.1 kg

DRUGS (6)
  1. CHANTIX [Suspect]
     Indication: SMOKING CESSATION THERAPY
  2. LUNESTA [Suspect]
     Indication: INSOMNIA
  3. PREDNISONE [Concomitant]
  4. VALSARTAN [Concomitant]
  5. SPIRIVA [Concomitant]
  6. ALBUTEROL [Concomitant]

REACTIONS (6)
  - ANXIETY [None]
  - DEPRESSION [None]
  - DYSPNOEA [None]
  - INSOMNIA [None]
  - OBSESSIVE-COMPULSIVE DISORDER [None]
  - SOMNOLENCE [None]
